FAERS Safety Report 5282535-5 (Version None)
Quarter: 2007Q1

REPORT INFORMATION
  Report Type: 
  Country: None (occurrence: None)
  Receive Date: 20070326
  Receipt Date: 20070319
  Transmission Date: 20070707
  Serious: Yes (Death)
  Sender: FDA-Public Use
  Company Number: 163-20785-06040252

PATIENT
  Age: 68 Year
  Sex: Male

DRUGS (16)
  1. THALOMID [Suspect]
     Indication: GLIOBLASTOMA MULTIFORME
     Dosage: 200 MG - 300 MG, DAILY, ORAL
     Route: 048
     Dates: start: 20060309, end: 20060326
  2. DECADRON [Suspect]
     Indication: DRUG USE FOR UNKNOWN INDICATION
  3. TYLENOL [Concomitant]
  4. ALLOPURINOL [Concomitant]
  5. MULTIVITAMIN [Concomitant]
  6. COLACE (DOCUSATE MESILATE) [Concomitant]
  7. INSULIN (INSULIN) [Concomitant]
  8. TANGO JUICE (MULTIVITAMIN AND MINERAL SUPPLEMENT) [Concomitant]
  9. KEPPRA [Concomitant]
  10. LISINOPRIL [Concomitant]
  11. CLARITIN [Concomitant]
  12. MOM (MAGNESIUM HYDROXIDE) [Concomitant]
  13. SUDAFED 12 HOUR [Concomitant]
  14. SEROQUEL [Concomitant]
  15. SENOKOT [Concomitant]
  16. COUMADIN [Concomitant]

REACTIONS (4)
  - CONDITION AGGRAVATED [None]
  - CONSTIPATION [None]
  - HYPOAESTHESIA [None]
  - PARAESTHESIA [None]
